FAERS Safety Report 8552270-6 (Version None)
Quarter: 2012Q3

REPORT INFORMATION
  Report Type: 
  Country: None (occurrence: None)
  Receive Date: 20120723
  Receipt Date: 20120723
  Transmission Date: 20120928
  Serious: Yes (Other)
  Sender: FDA-Public Use
  Company Number: None

PATIENT
  Sex: Female
  Weight: 87.5442 kg

DRUGS (2)
  1. PREMARIN [Suspect]
     Indication: DYSPAREUNIA
     Dosage: 1/4 APPLICATORFUL 2 X'S WEEKLY VAG
     Route: 067
     Dates: start: 20120712, end: 20120719
  2. PREMARIN [Suspect]
     Indication: VULVOVAGINAL DRYNESS
     Dosage: 1/4 APPLICATORFUL 2 X'S WEEKLY VAG
     Route: 067
     Dates: start: 20120712, end: 20120719

REACTIONS (4)
  - URTICARIA [None]
  - PRURITUS [None]
  - ERYTHEMA [None]
  - PAIN [None]
